FAERS Safety Report 5839567-5 (Version None)
Quarter: 2008Q3

REPORT INFORMATION
  Report Type: 
  Country: None (occurrence: None)
  Receive Date: 20080811
  Receipt Date: 20080606
  Transmission Date: 20090109
  Serious: No
  Sender: FDA-Public Use
  Company Number: A0729239A

PATIENT
  Sex: Female

DRUGS (2)
  1. TREXIMET [Suspect]
     Indication: MIGRAINE
     Route: 048
  2. UNKNOWN [Concomitant]

REACTIONS (5)
  - HYPOAESTHESIA [None]
  - LIP SWELLING [None]
  - MUSCULOSKELETAL STIFFNESS [None]
  - OEDEMA MOUTH [None]
  - PARAESTHESIA [None]
